FAERS Safety Report 11698567 (Version 2)
Quarter: 2015Q4

REPORT INFORMATION
  Report Type: Spontaneous
  Country: US (occurrence: None)
  Receive Date: 20151104
  Receipt Date: 20151201
  Transmission Date: 20160304
  Serious: No
  Sender: FDA-Public Use
  Company Number: US-MDT-ADR-2015-02082

PATIENT
  Age: 72 Year
  Sex: Male

DRUGS (1)
  1. BACLOFEN INTRATHECAL 200 MCG/ML [Suspect]
     Active Substance: BACLOFEN

REACTIONS (2)
  - Pain [None]
  - No therapeutic response [None]
